FAERS Safety Report 22532097 (Version 1)
Quarter: 2023Q2

REPORT INFORMATION
  Report Type: Spontaneous
  Country: US (occurrence: None)
  Receive Date: 20230606
  Receipt Date: 20230606
  Transmission Date: 20230721
  Serious: Yes (Hospitalization)
  Sender: FDA-Public Use
  Company Number: None

PATIENT
  Age: 48 Year
  Sex: Female
  Weight: 57.79 kg

DRUGS (13)
  1. IBRANCE [Suspect]
     Active Substance: PALBOCICLIB
     Indication: Breast cancer female
     Dosage: FREQUENCY : AS DIRECTED;?21 DAYS ON AND 7 DAYS OFF
     Route: 048
     Dates: start: 20221115
  2. AMLODIPINE [Concomitant]
     Active Substance: AMLODIPINE BESYLATE
  3. ARIMIDEX [Concomitant]
     Active Substance: ANASTROZOLE
  4. ASPIRIN [Concomitant]
     Active Substance: ASPIRIN
  5. ATORVASTATIN [Concomitant]
     Active Substance: ATORVASTATIN
  6. COZAAR [Concomitant]
     Active Substance: LOSARTAN POTASSIUM
  7. GABAPENTIN [Concomitant]
     Active Substance: GABAPENTIN
  8. KLOR-CON [Concomitant]
     Active Substance: POTASSIUM CHLORIDE
  9. VITAMINS [Concomitant]
     Active Substance: VITAMINS
  10. NAPROXEN [Concomitant]
     Active Substance: NAPROXEN
  11. NORCO [Concomitant]
     Active Substance: ACETAMINOPHEN\HYDROCODONE BITARTRATE
  12. REMERON [Concomitant]
     Active Substance: MIRTAZAPINE
  13. VITAMIN D NOS [Concomitant]
     Active Substance: VITAMIN D NOS

REACTIONS (1)
  - Hospitalisation [None]
